FAERS Safety Report 19040079 (Version 1)
Quarter: 2021Q1

REPORT INFORMATION
  Report Type: Spontaneous
  Country: AU (occurrence: AU)
  Receive Date: 20210322
  Receipt Date: 20210322
  Transmission Date: 20210420
  Serious: Yes (Other)
  Sender: FDA-Public Use
  Company Number: AU-IPSEN BIOPHARMACEUTICALS, INC.-2021-07295

PATIENT
  Age: 79 Year
  Sex: Female

DRUGS (2)
  1. SOMATULINE AUTOGEL [Suspect]
     Active Substance: LANREOTIDE ACETATE
     Indication: PRODUCT USED FOR UNKNOWN INDICATION
     Dosage: DOSE NOT REPORTED
     Route: 065
  2. APO?ATORVASTATIN [Concomitant]
     Active Substance: ATORVASTATIN

REACTIONS (14)
  - Pain in jaw [Unknown]
  - Abdominal neoplasm [Unknown]
  - Diabetes mellitus [Unknown]
  - Chest pain [Unknown]
  - Dyspnoea exertional [Unknown]
  - Eye haematoma [Unknown]
  - Lung neoplasm malignant [Unknown]
  - Injection site nodule [Unknown]
  - Neoplasm malignant [Unknown]
  - Bronchitis [Unknown]
  - Spinal cord neoplasm [Unknown]
  - Inappropriate schedule of product administration [Unknown]
  - Eye haemorrhage [Unknown]
  - Pain in extremity [Unknown]
